FAERS Safety Report 7023628-1 (Version None)
Quarter: 2010Q3

REPORT INFORMATION
  Report Type: 
  Country: None (occurrence: None)
  Receive Date: 20100930
  Receipt Date: 20100930
  Transmission Date: 20110219
  Serious: Yes (Other)
  Sender: FDA-Public Use
  Company Number: None

PATIENT
  Sex: Female
  Weight: 87.3 kg

DRUGS (10)
  1. HALDOL [Suspect]
     Indication: AGITATION
     Dosage: 5 MG AND 0.5 MG Q 4 HOURS PRN ORAL/IM, 8/27-9/1
     Route: 048
  2. LEXAPRO [Suspect]
     Indication: DEPRESSION
     Dosage: 20 MG DAILY ORAL, 8/26 - 8/31
  3. WELLBUTRIN [Concomitant]
  4. ZYPREXA [Concomitant]
  5. MACRODANTIN [Concomitant]
  6. GEODON [Concomitant]
  7. THORAZINE [Concomitant]
  8. ABILIFY [Concomitant]
  9. SYNTHROID [Concomitant]
  10. PREMARIN [Concomitant]

REACTIONS (1)
  - ELECTROCARDIOGRAM QT PROLONGED [None]
